FAERS Safety Report 4489613-9 (Version None)
Quarter: 2004Q4

REPORT INFORMATION
  Report Type: 
  Country: None (occurrence: None)
  Receive Date: 20041026
  Receipt Date: 20041008
  Transmission Date: 20050328
  Serious: Yes (Life-Threatening)
  Sender: FDA-Public Use
  Company Number: 20041000429

PATIENT
  Sex: Female

DRUGS (1)
  1. ATIVAN [Suspect]
     Indication: STATUS EPILEPTICUS
     Dosage: NI
     Dates: start: 20040919, end: 20040919

REACTIONS (1)
  - BRONCHOSPASM [None]
